FAERS Safety Report 16963223 (Version 1)
Quarter: 2019Q4

REPORT INFORMATION
  Report Type: Spontaneous
  Country: US (occurrence: US)
  Receive Date: 20191025
  Receipt Date: 20191025
  Transmission Date: 20200122
  Serious: Yes (Other)
  Sender: FDA-Public Use
  Company Number: US-ANIPHARMA-2019-US-020173

PATIENT
  Age: 80 Year
  Sex: Female
  Weight: 84.37 kg

DRUGS (1)
  1. ARIMIDEX [Suspect]
     Active Substance: ANASTROZOLE
     Indication: BREAST CANCER
     Dosage: UNKNOWN
     Route: 065
     Dates: start: 20180913, end: 201902

REACTIONS (3)
  - Disease progression [Unknown]
  - Metastases to lymph nodes [Unknown]
  - Osteopenia [Unknown]

NARRATIVE: CASE EVENT DATE: 20181022
